FAERS Safety Report 8765815 (Version 2)
Quarter: 2012Q4

REPORT INFORMATION
  Report Type: 
  Country: JP (occurrence: JP)
  Receive Date: 20120904
  Receipt Date: 20121022
  Transmission Date: 20130627
  Serious: No
  Sender: FDA-Public Use
  Company Number: JP-AMGEN-JPNSP2012054801

PATIENT
  Age: 70 Year
  Sex: Male
  Weight: 67 kg

DRUGS (2)
  1. RANMARK [Suspect]
     Indication: PROSTATE CANCER
     Dosage: 120 mg, UNK
     Route: 058
     Dates: start: 20120731
  2. RANMARK [Suspect]
     Indication: MALIGNANT NEOPLASM OF RENAL PELVIS

REACTIONS (3)
  - Somnolence [Recovering/Resolving]
  - Asthenia [Recovering/Resolving]
  - Hypocalcaemia [Recovering/Resolving]
